FAERS Safety Report 7967235-2 (Version None)
Quarter: 2011Q4

REPORT INFORMATION
  Report Type: 
  Country: None (occurrence: None)
  Receive Date: 20111209
  Receipt Date: 20111206
  Transmission Date: 20120403
  Serious: Yes (Death)
  Sender: FDA-Public Use
  Company Number: PHEH2011US07481

PATIENT
  Age: 62 Year
  Sex: Male

DRUGS (3)
  1. ZOMETA [Suspect]
  2. AVASTIN [Concomitant]
  3. CHEMOTHERAPEUTICS NOS [Concomitant]

REACTIONS (1)
  - DEATH [None]
